FAERS Safety Report 16569896 (Version 1)
Quarter: 2019Q3

REPORT INFORMATION
  Report Type: Report from Study
  Country: IT (occurrence: IT)
  Receive Date: 20190715
  Receipt Date: 20190715
  Transmission Date: 20191004
  Serious: Yes (Other)
  Sender: FDA-Public Use
  Company Number: IT-TEVA-2019-IT-1076675

PATIENT
  Age: 75 Year
  Sex: Male

DRUGS (3)
  1. LERCANIDIPINE [Concomitant]
     Active Substance: LERCANIDIPINE
  2. AMIODARONE [Suspect]
     Active Substance: AMIODARONE
     Indication: ATRIAL FIBRILLATION
     Route: 048
     Dates: start: 20180510, end: 20190510
  3. NEBIVOLOL. [Concomitant]
     Active Substance: NEBIVOLOL

REACTIONS (2)
  - Drug ineffective [Recovering/Resolving]
  - Atrial fibrillation [Recovering/Resolving]

NARRATIVE: CASE EVENT DATE: 20190510
